FAERS Safety Report 4675683-1 (Version None)
Quarter: 2005Q2

REPORT INFORMATION
  Report Type: 
  Country: None (occurrence: None)
  Receive Date: 20050527
  Receipt Date: 20041216
  Transmission Date: 20051028
  Serious: No
  Sender: FDA-Public Use
  Company Number: US-BRISTOL-MYERS SQUIBB COMPANY-12797601

PATIENT
  Age: 65 Year
  Sex: Female

DRUGS (5)
  1. ERBITUX [Suspect]
     Indication: COLON CANCER METASTATIC
     Route: 042
     Dates: start: 20040101, end: 20040101
  2. ATENOLOL [Concomitant]
  3. CAMPTOSAR [Concomitant]
  4. COUMADIN [Concomitant]
  5. DECADRON [Concomitant]

REACTIONS (1)
  - CREATININE RENAL CLEARANCE INCREASED [None]
